FAERS Safety Report 8978153 (Version 1)
Quarter: 2012Q4

REPORT INFORMATION
  Report Type: Spontaneous
  Country: US (occurrence: None)
  Receive Date: 20121218
  Receipt Date: 20121218
  Transmission Date: 20130627
  Serious: No
  Sender: FDA-Public Use
  Company Number: None

PATIENT

DRUGS (1)
  1. COUMADIN [Suspect]
     Dosage: Coumadin 1 mg one-half tablet every other day

REACTIONS (2)
  - Medication error [None]
  - Incorrect dose administered [None]
